FAERS Safety Report 4631235-0 (Version None)
Quarter: 2005Q2

REPORT INFORMATION
  Report Type: 
  Country: None (occurrence: None)
  Receive Date: 20050407
  Receipt Date: 20050407
  Transmission Date: 20051028
  Serious: No
  Sender: FDA-Public Use
  Company Number: None

PATIENT
  Sex: Female

DRUGS (2)
  1. NEURONTIN [Suspect]
     Indication: ABNORMAL BEHAVIOUR
     Dosage: III QD
     Dates: start: 20031001
  2. NEURONTIN [Suspect]
     Indication: ASPERGER'S DISORDER
     Dosage: III QD
     Dates: start: 20031001

REACTIONS (3)
  - PYREXIA [None]
  - URTICARIA [None]
  - VOMITING [None]
